FAERS Safety Report 8356883 (Version 6)
Quarter: 2012Q4

REPORT INFORMATION
  Report Type: 
  Country: PR (occurrence: PR)
  Receive Date: 20120126
  Receipt Date: 20120921
  Transmission Date: 20130627
  Serious: Yes (Hospitalization, Disabling, Other)
  Sender: FDA-Public Use
  Company Number: PR-009507513-1110USA01115

PATIENT

DRUGS (6)
  1. FOSAMAX [Suspect]
     Indication: OSTEOPOROSIS
     Dosage: 10 mg, qd
     Route: 048
     Dates: start: 19981109
  2. FOSAMAX [Suspect]
     Indication: OSTEOPENIA
     Dosage: 70 mg, QW
     Route: 048
     Dates: end: 20050418
  3. CYANOCOBALAMIN [Concomitant]
  4. VITAMIN D NOS [Concomitant]
     Indication: VITAMIN D DEFICIENCY
  5. ASCORBIC ACID [Concomitant]
     Dosage: UNK UNK, qd
  6. CALCIUM (UNSPECIFIED) [Concomitant]
     Indication: CALCIUM DEFICIENCY
     Dosage: UNK UNK, bid

REACTIONS (34)
  - Tibia fracture [Recovered/Resolved]
  - Low turnover osteopathy [Not Recovered/Not Resolved]
  - Ankle fracture [Recovered/Resolved]
  - Limb injury [Unknown]
  - Skin ulcer [Not Recovered/Not Resolved]
  - Radius fracture [Unknown]
  - Patella fracture [Recovered/Resolved]
  - Hypertension [Unknown]
  - Aphasia [Recovered/Resolved]
  - Herpes zoster [Unknown]
  - Cataract [Unknown]
  - Hyperlipidaemia [Unknown]
  - Large intestine polyp [Unknown]
  - Hypokalaemia [Recovered/Resolved]
  - Calcium deficiency [Unknown]
  - Vitamin D deficiency [Unknown]
  - Ulna fracture [Unknown]
  - Skin irritation [Unknown]
  - Device failure [Unknown]
  - Bursitis [Unknown]
  - Drug hypersensitivity [Unknown]
  - Wound drainage [Recovered/Resolved]
  - Fall [Unknown]
  - Musculoskeletal pain [Not Recovered/Not Resolved]
  - Osteoarthritis [Unknown]
  - Fibula fracture [Unknown]
  - Diarrhoea [Recovering/Resolving]
  - Retinal detachment [Unknown]
  - Oesophageal stenosis [Recovering/Resolving]
  - Spinal osteoarthritis [Unknown]
  - Sacroiliitis [Unknown]
  - Muscle disorder [Unknown]
  - Myofascial pain syndrome [Unknown]
  - Herpes zoster [Unknown]
